FAERS Safety Report 20333659 (Version 1)
Quarter: 2022Q1

REPORT INFORMATION
  Report Type: Report from Study
  Country: US (occurrence: US)
  Receive Date: 20220113
  Receipt Date: 20220113
  Transmission Date: 20220423
  Serious: Yes (Hospitalization)
  Sender: FDA-Public Use
  Company Number: US-BRISTOL-MYERS SQUIBB COMPANY-BMS-2022-003527

PATIENT
  Age: 56 Year
  Sex: Male
  Weight: 67.12 kg

DRUGS (2)
  1. HUMAX-IL8 [Suspect]
     Active Substance: HUMAX-IL8
     Indication: Hepatocellular carcinoma
     Dosage: 2400 MILLIGRAM, 2 DOSES
     Route: 042
     Dates: start: 20210812
  2. NIVOLUMAB [Suspect]
     Active Substance: NIVOLUMAB
     Indication: Hepatocellular carcinoma
     Dosage: 480 MILLIGRAM, 5 DOSES
     Route: 042
     Dates: start: 20210812

REACTIONS (1)
  - Supraventricular tachycardia [Unknown]

NARRATIVE: CASE EVENT DATE: 20211206
